FAERS Safety Report 12310882 (Version 1)
Quarter: 2016Q2

REPORT INFORMATION
  Report Type: Spontaneous
  Country: PT (occurrence: PT)
  Receive Date: 20160427
  Receipt Date: 20160427
  Transmission Date: 20160815
  Serious: Yes (Other)
  Sender: FDA-Public Use
  Company Number: PT-TEVA-653501ISR

PATIENT
  Age: 45 Year
  Sex: Female
  Weight: 68 kg

DRUGS (5)
  1. ETOPOSIDO TEVA 100 MG/5 ML SOLUTION FOR INJECTION [Suspect]
     Active Substance: ETOPOSIDE
     Indication: T-CELL LYMPHOMA
     Dosage: 183 MILLIGRAM DAILY;
     Route: 042
     Dates: start: 20160406, end: 20160406
  2. CICLOFOSFAMIDA [Concomitant]
     Active Substance: CYCLOPHOSPHAMIDE
     Indication: T-CELL LYMPHOMA
     Dosage: 1372.5 MILLIGRAM DAILY;
     Route: 042
     Dates: start: 20160404, end: 20160404
  3. VINCRISTINA [Concomitant]
     Active Substance: VINCRISTINE
     Indication: T-CELL LYMPHOMA
     Dosage: 2 MILLIGRAM DAILY;
     Route: 042
     Dates: start: 20160404, end: 20160404
  4. ONDANSETROM [Concomitant]
     Indication: ALLERGY PROPHYLAXIS
     Dosage: PRE- MEDICATION
     Route: 042
     Dates: start: 201604, end: 201604
  5. UROMITEXAN [Concomitant]
     Active Substance: MESNA
     Indication: T-CELL LYMPHOMA
     Route: 042
     Dates: start: 20160404, end: 20160404

REACTIONS (4)
  - Hot flush [Recovered/Resolved]
  - Erythema [Recovered/Resolved]
  - Throat tightness [Recovered/Resolved]
  - Lip oedema [Recovered/Resolved]

NARRATIVE: CASE EVENT DATE: 20160406
